FAERS Safety Report 5049017-7 (Version None)
Quarter: 2006Q3

REPORT INFORMATION
  Report Type: 
  Country: None (occurrence: None)
  Receive Date: 20060712
  Receipt Date: 20051221
  Transmission Date: 20061208
  Serious: No
  Sender: FDA-Public Use
  Company Number: US-GLAXOSMITHKLINE-A0586658A

PATIENT
  Age: 70 Year
  Sex: Female

DRUGS (3)
  1. IMITREX [Suspect]
     Indication: MIGRAINE
     Route: 048
     Dates: start: 20040101, end: 20040101
  2. BLOOD PRESSURE MEDICATION [Concomitant]
     Route: 065
  3. ANTI-CHOLESTEROL MEDICATION [Concomitant]
     Route: 065

REACTIONS (1)
  - DRUG INEFFECTIVE [None]
